FAERS Safety Report 21706324 (Version 1)
Quarter: 2022Q4

REPORT INFORMATION
  Report Type: Spontaneous
  Country: ES (occurrence: ES)
  Receive Date: 20221209
  Receipt Date: 20221209
  Transmission Date: 20230113
  Serious: Yes (Other)
  Sender: FDA-Public Use
  Company Number: None

PATIENT
  Age: 76 Year
  Sex: Male

DRUGS (5)
  1. BENDAMUSTINE HYDROCHLORIDE [Suspect]
     Active Substance: BENDAMUSTINE HYDROCHLORIDE
     Indication: Lymphoma
     Route: 042
     Dates: start: 20220210, end: 20220211
  2. RITUXIMAB [Suspect]
     Active Substance: RITUXIMAB
     Indication: Lymphoma
     Route: 042
     Dates: start: 20210526, end: 20220211
  3. FOLIC ACID [Suspect]
     Active Substance: FOLIC ACID
     Indication: Prophylaxis
     Dosage: 15 MG, EVERY OTHER DAY (EVERY 48 HRS)
     Route: 048
     Dates: start: 20220208, end: 20220302
  4. SULFAMETHOXAZOLE\TRIMETHOPRIM [Suspect]
     Active Substance: SULFAMETHOXAZOLE\TRIMETHOPRIM
     Indication: Prophylaxis
     Dosage: 2 DOSAGE FORMS DAILY;
     Route: 048
     Dates: start: 20220208, end: 20220302
  5. ALLOPURINOL [Suspect]
     Active Substance: ALLOPURINOL
     Indication: Prophylaxis
     Dosage: 300 MILLIGRAM DAILY;
     Route: 048
     Dates: start: 20220211, end: 20220302

REACTIONS (2)
  - Erythema [Recovered/Resolved]
  - Pruritus [Recovered/Resolved]

NARRATIVE: CASE EVENT DATE: 20220225
